APPROVED DRUG PRODUCT: BACLOFEN
Active Ingredient: BACLOFEN
Strength: 2MG/ML
Dosage Form/Route: INJECTABLE;INTRATHECAL
Application: A091193 | Product #003 | TE Code: AP
Applicant: AMNEAL PHARMACEUTICALS LLC
Approved: May 3, 2016 | RLD: No | RS: No | Type: RX